FAERS Safety Report 16808439 (Version 1)
Quarter: 2019Q3

REPORT INFORMATION
  Report Type: Spontaneous
  Country: FR (occurrence: FR)
  Receive Date: 20190916
  Receipt Date: 20190916
  Transmission Date: 20191005
  Serious: Yes (Other)
  Sender: FDA-Public Use
  Company Number: FR-LUPIN PHARMACEUTICALS INC.-2019-04338

PATIENT
  Age: 71 Year
  Sex: Male
  Weight: 85 kg

DRUGS (10)
  1. ASPIRIN (E.C.) [Concomitant]
     Active Substance: ASPIRIN
     Indication: PRODUCT USED FOR UNKNOWN INDICATION
     Dosage: UNK
     Route: 065
  2. CEFTAROLINE [Concomitant]
     Active Substance: CEFTAROLINE
     Indication: STAPHYLOCOCCAL INFECTION
  3. RAMIPRIL. [Concomitant]
     Active Substance: RAMIPRIL
     Indication: PRODUCT USED FOR UNKNOWN INDICATION
     Dosage: UNK
     Route: 065
  4. LINEZOLID. [Suspect]
     Active Substance: LINEZOLID
     Indication: DEVICE RELATED INFECTION
  5. DAPTOMYCIN. [Concomitant]
     Active Substance: DAPTOMYCIN
     Indication: STAPHYLOCOCCAL INFECTION
     Dosage: 700 MILLIGRAM, QD
     Route: 065
  6. BISOPROLOL [Concomitant]
     Active Substance: BISOPROLOL
     Indication: PRODUCT USED FOR UNKNOWN INDICATION
     Dosage: UNK
     Route: 065
  7. DAPTOMYCIN. [Concomitant]
     Active Substance: DAPTOMYCIN
     Indication: DEVICE RELATED INFECTION
  8. FUROSEMIDE. [Concomitant]
     Active Substance: FUROSEMIDE
     Indication: PRODUCT USED FOR UNKNOWN INDICATION
     Dosage: UNK
     Route: 065
  9. LINEZOLID. [Suspect]
     Active Substance: LINEZOLID
     Indication: STAPHYLOCOCCAL INFECTION
     Dosage: 600 MILLIGRAM, BID
     Route: 065
     Dates: start: 201708
  10. CEFTAROLINE [Concomitant]
     Active Substance: CEFTAROLINE
     Indication: DEVICE RELATED INFECTION
     Dosage: 1200 MILLIGRAM, QD
     Route: 065

REACTIONS (1)
  - Bone marrow toxicity [Recovered/Resolved]
